FAERS Safety Report 12865169 (Version 1)
Quarter: 2016Q4

REPORT INFORMATION
  Report Type: Report from Study
  Country: ES (occurrence: ES)
  Receive Date: 20161020
  Receipt Date: 20161020
  Transmission Date: 20170207
  Serious: Yes (Hospitalization)
  Sender: FDA-Public Use
  Company Number: ES-TEVA-702576ISR

PATIENT
  Age: 78 Year
  Sex: Male

DRUGS (4)
  1. BISOPROLOL [Suspect]
     Active Substance: BISOPROLOL
     Indication: HYPERTENSIVE HEART DISEASE
     Route: 048
     Dates: start: 201407, end: 20150105
  2. TROMALYT [Interacting]
     Active Substance: ASPIRIN
     Indication: ARTERIAL DISORDER
     Dosage: PROLONGED RELEASE
     Route: 048
     Dates: start: 201312, end: 20150105
  3. ENALAPRIL [Interacting]
     Active Substance: ENALAPRIL
     Indication: HYPERTENSION
     Route: 048
     Dates: end: 20150105
  4. PLETAL [Interacting]
     Active Substance: CILOSTAZOL
     Indication: ARTERIAL DISORDER
     Route: 048
     Dates: start: 201408, end: 20150105

REACTIONS (10)
  - Hyperkalaemia [Recovered/Resolved]
  - Acute kidney injury [Recovered/Resolved]
  - Blood sodium decreased [None]
  - Mucosal dryness [None]
  - Pallor [None]
  - Drug interaction [Unknown]
  - Potentiating drug interaction [Unknown]
  - Troponin increased [None]
  - Blood pressure decreased [None]
  - Haematocrit decreased [None]

NARRATIVE: CASE EVENT DATE: 20150105
